FAERS Safety Report 11012596 (Version 1)
Quarter: 2015Q2

REPORT INFORMATION
  Report Type: Spontaneous
  Country: US (occurrence: None)
  Receive Date: 20150410
  Receipt Date: 20150410
  Transmission Date: 20150821
  Serious: No
  Sender: FDA-Public Use
  Company Number: None

PATIENT
  Age: 63 Year
  Sex: Female
  Weight: 79.38 kg

DRUGS (3)
  1. RESTASIS [Suspect]
     Active Substance: CYCLOSPORINE
     Indication: CORNEAL EROSION
     Dosage: ONE DROP  TWICE DAILY  INTO THE EYE
     Dates: start: 20150115, end: 20150220
  2. RESTASIS [Suspect]
     Active Substance: CYCLOSPORINE
     Indication: DISEASE RECURRENCE
     Dosage: ONE DROP  TWICE DAILY  INTO THE EYE
     Dates: start: 20150115, end: 20150220
  3. RESTASIS [Suspect]
     Active Substance: CYCLOSPORINE
     Indication: DRY EYE
     Dosage: ONE DROP  TWICE DAILY  INTO THE EYE
     Dates: start: 20150115, end: 20150220

REACTIONS (3)
  - Erythema [None]
  - Oropharyngeal pain [None]
  - Skin exfoliation [None]

NARRATIVE: CASE EVENT DATE: 20150203
